FAERS Safety Report 9076244 (Version 1)
Quarter: 2013Q1

REPORT INFORMATION
  Report Type: Report from Study
  Country: US (occurrence: US)
  Receive Date: 20130129
  Receipt Date: 20130129
  Transmission Date: 20140127
  Serious: No
  Sender: FDA-Public Use
  Company Number: US-ABBOTT-12P-163-0923585-00

PATIENT
  Sex: Female
  Weight: 104.87 kg

DRUGS (13)
  1. HUMIRA 40 MG/0.8 ML PEN [Suspect]
     Indication: PSORIATIC ARTHROPATHY
     Dates: start: 200905
  2. HUMIRA 40 MG/0.8 ML PEN [Suspect]
  3. OMEPRAZOLE [Concomitant]
     Indication: GASTROOESOPHAGEAL REFLUX DISEASE
     Dosage: 20 MG DAILY
  4. ACTONEL [Concomitant]
     Indication: HYPERTENSION
     Dosage: 50 MG DAILY
  5. LEFLUNOMIDE [Concomitant]
     Indication: PRODUCT USED FOR UNKNOWN INDICATION
     Dosage: 20 MG DAILY
  6. LEVOTHYROXIDE [Concomitant]
     Indication: HYPOTHYROIDISM
     Dosage: 300 MCG DAILY
  7. MELOXICAM [Concomitant]
     Indication: PRODUCT USED FOR UNKNOWN INDICATION
     Dosage: 7.5 MG DAILY
  8. ESTRADIOL [Concomitant]
     Indication: HORMONE REPLACEMENT THERAPY
     Dosage: 2 MG DAILY
  9. SORIATANE [Concomitant]
     Indication: PSORIASIS
     Dosage: 25 MG DAILY
  10. ALPRAZOLAM [Concomitant]
     Indication: INSOMNIA
     Dosage: 1 MG 1/2 TABLET AT BEDTIME
  11. LISINOPRIL/HCTZ [Concomitant]
     Indication: HYPERTENSION
     Dosage: 20/12.5 MG, 2 TAB DAILY
  12. LISINOPRIL/HCTZ [Concomitant]
     Dosage: 20/12.5 MG, 2 TABS DAILY
  13. LEXAPRO [Concomitant]
     Indication: ANXIETY
     Dosage: 10 MG DAILY
     Dates: start: 201111

REACTIONS (14)
  - Dysarthria [Recovered/Resolved]
  - Joint range of motion decreased [Recovered/Resolved]
  - Gait disturbance [Recovered/Resolved]
  - Asthenia [Recovered/Resolved]
  - Psoriatic arthropathy [Recovered/Resolved]
  - Stress [Recovered/Resolved]
  - Anxiety [Recovered/Resolved]
  - Blood pressure abnormal [Recovered/Resolved]
  - Psoriatic arthropathy [Recovered/Resolved]
  - Fatigue [Recovered/Resolved]
  - Disturbance in attention [Recovered/Resolved]
  - Fatigue [Recovered/Resolved]
  - Incorrect storage of drug [Unknown]
  - Poor quality drug administered [Unknown]
